FAERS Safety Report 9303813 (Version 1)
Quarter: 2013Q1

REPORT INFORMATION
  Report Type: Spontaneous
  Country: US (occurrence: None)
  Receive Date: 20130122
  Receipt Date: 20130122
  Transmission Date: 20140127
  Serious: Yes (Death, Hospitalization)
  Sender: FDA-Public Use
  Company Number: 2012-1045

PATIENT
  Age: 56 Year
  Sex: Male
  Weight: 66.23 kg

DRUGS (3)
  1. KYPROLIS [Suspect]
     Indication: PLASMA CELL MYELOMA
     Dosage: (35 MG, DAYS 1,2), INTRAVENOUS
     Route: 042
     Dates: start: 20120919, end: 20120920
  2. ZOFRAN (ONDANSETRON) (ONDANSETRON) [Concomitant]
  3. LEXAPRO (ESCITALOPRAM OXALATE) (TABLET) (ESCITALOPRAM OXALATE) [Concomitant]

REACTIONS (13)
  - Anaemia [None]
  - Mental status changes [None]
  - Fatigue [None]
  - Epistaxis [None]
  - Pyrexia [None]
  - Decreased appetite [None]
  - Delirium [None]
  - Blood potassium decreased [None]
  - Blood calcium decreased [None]
  - Blood glucose increased [None]
  - Aspartate aminotransferase increased [None]
  - Blood creatinine increased [None]
  - Metabolic encephalopathy [None]
